FAERS Safety Report 12983299 (Version 12)
Quarter: 2017Q2

REPORT INFORMATION
  Report Type: Report from Study
  Country: FR (occurrence: FR)
  Receive Date: 20161129
  Receipt Date: 20170508
  Transmission Date: 20170830
  Serious: Yes (Death, Hospitalization, Disabling)
  Sender: FDA-Public Use
  Company Number: FR-INCYTE CORPORATION-2016IN007575

PATIENT
  Age: 69 Year
  Sex: Female

DRUGS (27)
  1. JAKAVI [Suspect]
     Active Substance: RUXOLITINIB
     Indication: MYELOFIBROSIS
     Dosage: 20 MG, BID
     Route: 048
     Dates: start: 20121129, end: 20161031
  2. VIMPAT [Concomitant]
     Active Substance: LACOSAMIDE
     Indication: PRODUCT USED FOR UNKNOWN INDICATION
     Dosage: UNK
     Route: 065
     Dates: start: 20161110
  3. VIMPAT [Concomitant]
     Active Substance: LACOSAMIDE
     Dosage: 100 MG, BID
     Route: 048
  4. KARDEGIC [Concomitant]
     Active Substance: ASPIRIN LYSINE
     Dosage: 75 MG, QD
     Route: 065
  5. KARDEGIC [Concomitant]
     Active Substance: ASPIRIN LYSINE
     Dosage: 75 MG, QD
     Route: 065
  6. VIMPAT [Concomitant]
     Active Substance: LACOSAMIDE
     Dosage: 100 MG, BID
     Route: 048
  7. VIMPAT [Concomitant]
     Active Substance: LACOSAMIDE
     Dosage: 100 MG, BID
     Route: 048
  8. KARDEGIC [Concomitant]
     Active Substance: ASPIRIN LYSINE
     Indication: PRODUCT USED FOR UNKNOWN INDICATION
     Dosage: 75 MG, QD
     Route: 065
  9. KARDEGIC [Concomitant]
     Active Substance: ASPIRIN LYSINE
     Dosage: 75 MG, QD
     Route: 065
  10. KARDEGIC [Concomitant]
     Active Substance: ASPIRIN LYSINE
     Dosage: 75 MG, QD
     Route: 065
  11. DIFFU K [Concomitant]
     Active Substance: POTASSIUM CHLORIDE
     Indication: PRODUCT USED FOR UNKNOWN INDICATION
     Dosage: 600 MG, QD
     Route: 065
  12. JAKAVI [Suspect]
     Active Substance: RUXOLITINIB
     Dosage: 10 MG, BID
     Route: 048
     Dates: start: 20161101, end: 20161114
  13. HEMIGOXINE [Suspect]
     Active Substance: DIGOXIN
     Indication: PRODUCT USED FOR UNKNOWN INDICATION
     Dosage: 0.125 MG, QD
     Route: 048
     Dates: start: 20161111
  14. KARDEGIC [Concomitant]
     Active Substance: ASPIRIN LYSINE
     Dosage: 75 MG, QD
     Route: 065
  15. ARANESP [Concomitant]
     Active Substance: DARBEPOETIN ALFA
     Indication: PRODUCT USED FOR UNKNOWN INDICATION
     Dosage: 100?G/0.5 ML (EVERY 14 DAYS)
     Route: 065
     Dates: start: 20161115, end: 20161129
  16. VIMPAT [Concomitant]
     Active Substance: LACOSAMIDE
     Dosage: 100 MG, BID
     Route: 048
  17. VIMPAT [Concomitant]
     Active Substance: LACOSAMIDE
     Dosage: 100 MG, BID
     Route: 048
  18. CARDENSIEL [Concomitant]
     Active Substance: BISOPROLOL FUMARATE
     Indication: PRODUCT USED FOR UNKNOWN INDICATION
     Dosage: 2.5 MG, QD
     Route: 065
     Dates: end: 20161123
  19. BISOCE [Concomitant]
     Active Substance: BISOPROLOL
     Indication: PRODUCT USED FOR UNKNOWN INDICATION
     Dosage: 5 MG, QD
     Route: 048
     Dates: start: 20161124
  20. FEROGRAD [Concomitant]
     Active Substance: ASCORBIC ACID\FERROUS SULFATE
     Indication: PRODUCT USED FOR UNKNOWN INDICATION
     Dosage: 2 DF, QD
     Route: 065
  21. VIMPAT [Concomitant]
     Active Substance: LACOSAMIDE
     Dosage: 100 MG, BID
     Route: 048
  22. VIMPAT [Concomitant]
     Active Substance: LACOSAMIDE
     Dosage: 100 MG, BID
     Route: 048
  23. VIMPAT [Concomitant]
     Active Substance: LACOSAMIDE
     Dosage: 100 MG, BID
     Route: 048
  24. KARDEGIC [Concomitant]
     Active Substance: ASPIRIN LYSINE
     Dosage: 75 MG, QD
     Route: 065
  25. INEXIUM [Concomitant]
     Active Substance: ESOMEPRAZOLE
     Indication: PRODUCT USED FOR UNKNOWN INDICATION
     Dosage: 40 MG, QD
     Route: 065
  26. KARDEGIC [Concomitant]
     Active Substance: ASPIRIN LYSINE
     Dosage: 75 MG, QD
     Route: 065
  27. KARDEGIC [Concomitant]
     Active Substance: ASPIRIN LYSINE
     Dosage: 75 MG, QD
     Route: 065

REACTIONS (13)
  - Respiratory distress [Fatal]
  - Anaemia [Not Recovered/Not Resolved]
  - Epstein-Barr virus test positive [Unknown]
  - Mycobacterium avium complex infection [Fatal]
  - Oral fungal infection [Recovered/Resolved]
  - Pulmonary mass [Unknown]
  - Thrombophlebitis [Unknown]
  - Systemic inflammatory response syndrome [Not Recovered/Not Resolved]
  - Escherichia infection [Unknown]
  - Anaemia [Recovered/Resolved]
  - Oral candidiasis [Not Recovered/Not Resolved]
  - Thrombocytopenia [Not Recovered/Not Resolved]
  - Pyelonephritis acute [Unknown]

NARRATIVE: CASE EVENT DATE: 201409
